FAERS Safety Report 16220398 (Version 5)
Quarter: 2019Q4

REPORT INFORMATION
  Report Type: Report from Study
  Country: RU (occurrence: RU)
  Receive Date: 20190420
  Receipt Date: 20191002
  Transmission Date: 20200122
  Serious: Yes (Hospitalization, Other)
  Sender: FDA-Public Use
  Company Number: PHHO2019RU003006

PATIENT
  Age: 24 Year
  Sex: Female
  Weight: 51 kg

DRUGS (10)
  1. CLEMASTINE [Concomitant]
     Active Substance: CLEMASTINE
     Indication: RELAPSING MULTIPLE SCLEROSIS
     Dosage: 1 MG, PRN
     Route: 048
     Dates: start: 20171023, end: 20171107
  2. TERIFLUNOMIDE. [Suspect]
     Active Substance: TERIFLUNOMIDE
     Dosage: 14 MG, CONT
     Route: 048
     Dates: start: 20171023
  3. TINIDAZOL [Concomitant]
     Indication: PYODERMA
     Dosage: 1 DF, QD
     Route: 048
     Dates: start: 20181120, end: 20181124
  4. TERIFLUNOMIDE. [Suspect]
     Active Substance: TERIFLUNOMIDE
     Dosage: 20 MG, Q4W
     Route: 058
     Dates: start: 20171023
  5. ACYCLOVIR. [Concomitant]
     Active Substance: ACYCLOVIR
     Dosage: 200 MG, BID
     Route: 048
     Dates: start: 20171108, end: 20171110
  6. ZINC OXIDE. [Concomitant]
     Active Substance: ZINC OXIDE
     Indication: PYODERMA
     Dosage: 1 DF, BID
     Route: 061
     Dates: start: 20181120, end: 20181128
  7. CIPROFLOXACINE [Concomitant]
     Active Substance: CIPROFLOXACIN
     Indication: PYODERMA
     Dosage: 1 DF, QD
     Route: 048
     Dates: start: 20181120, end: 20181124
  8. NUVARING [Concomitant]
     Active Substance: ETHINYL ESTRADIOL\ETONOGESTREL
     Indication: CONTRACEPTION
     Dosage: Q3W
     Route: 067
     Dates: start: 20180825, end: 20180925
  9. METHYLPREDNISOLONE. [Concomitant]
     Active Substance: METHYLPREDNISOLONE
     Indication: RELAPSING MULTIPLE SCLEROSIS
     Dosage: 100 MG, ONCE/SINGLE
     Route: 030
     Dates: start: 20171023, end: 20171023
  10. ACYCLOVIR. [Concomitant]
     Active Substance: ACYCLOVIR
     Indication: HERPES ZOSTER
     Dosage: 200 MG, 5QD
     Route: 048
     Dates: start: 20171103, end: 20171107

REACTIONS (2)
  - Pulmonary embolism [Recovered/Resolved]
  - Deep vein thrombosis [Recovered/Resolved]

NARRATIVE: CASE EVENT DATE: 20190312
